FAERS Safety Report 7608841-4 (Version None)
Quarter: 2011Q3

REPORT INFORMATION
  Report Type: 
  Country: None (occurrence: None)
  Receive Date: 20110713
  Receipt Date: 20110713
  Transmission Date: 20111222
  Serious: Yes (Hospitalization)
  Sender: FDA-Public Use
  Company Number: None

PATIENT
  Sex: Male
  Weight: 73.9363 kg

DRUGS (1)
  1. XELODA [Suspect]
     Dosage: 1000MG BID PO
     Route: 048
     Dates: start: 20110621, end: 20110628

REACTIONS (3)
  - BACTERIAL INFECTION [None]
  - DEVICE RELATED INFECTION [None]
  - VIRAL INFECTION [None]
